FAERS Safety Report 14678954 (Version 2)
Quarter: 2018Q1

REPORT INFORMATION
  Report Type: Spontaneous
  Country: JP (occurrence: JP)
  Receive Date: 20180326
  Receipt Date: 20180326
  Transmission Date: 20180509
  Serious: Yes (Hospitalization)
  Sender: FDA-Public Use
  Company Number: PHJP2018JP006743

PATIENT
  Age: 65 Year
  Sex: Female

DRUGS (3)
  1. CICLOSPORIN [Suspect]
     Active Substance: CYCLOSPORINE
     Indication: APLASTIC ANAEMIA
     Dosage: UNK
     Route: 048
  2. CICLOSPORIN [Suspect]
     Active Substance: CYCLOSPORINE
     Dosage: 200 MG, UNK
     Route: 065
     Dates: start: 20161029
  3. ANTITHYMOCYTE IMMUNOGLOBULIN [Concomitant]
     Active Substance: THYMOCYTE IMMUNE GLOBULIN NOS
     Indication: PRODUCT USED FOR UNKNOWN INDICATION
     Dosage: 2.5MG/KG, UNK
     Route: 065
     Dates: start: 20161107, end: 20161111

REACTIONS (5)
  - Platelet count decreased [Unknown]
  - Haemoglobin decreased [Unknown]
  - Retinal haemorrhage [Unknown]
  - Visual acuity reduced [Unknown]
  - Drug effect incomplete [Unknown]
